FAERS Safety Report 10223751 (Version 1)
Quarter: 2014Q2

REPORT INFORMATION
  Report Type: Spontaneous
  Country: US (occurrence: US)
  Receive Date: 20140609
  Receipt Date: 20140609
  Transmission Date: 20141212
  Serious: No
  Sender: FDA-Public Use
  Company Number: US-DRREDDYS-USA/USA/14/0038579

PATIENT
  Age: 50 Year
  Sex: Female
  Weight: 94.8 kg

DRUGS (1)
  1. FEXOFENADINE HCL  OTC [Suspect]
     Indication: HYPERSENSITIVITY
     Route: 065
     Dates: start: 20140224, end: 20140226

REACTIONS (2)
  - Drug ineffective [Unknown]
  - Product quality issue [Unknown]
